FAERS Safety Report 25926770 (Version 1)
Quarter: 2025Q4

REPORT INFORMATION
  Report Type: Spontaneous
  Country: US (occurrence: None)
  Receive Date: 20251015
  Receipt Date: 20251015
  Transmission Date: 20260118
  Serious: Yes (Life-Threatening)
  Sender: FDA-CTU
  Company Number: None

PATIENT
  Age: 39 Year
  Sex: Female
  Weight: 74.25 kg

DRUGS (9)
  1. CROMOLYN SODIUM [Suspect]
     Active Substance: CROMOLYN SODIUM
     Indication: Mast cell activation syndrome
     Dosage: OTHER QUANTITY : 2 DROP(S);?FREQUENCY : 4 TIMES A DAY;?
     Route: 048
     Dates: start: 20251013, end: 20251013
  2. ADVAIR HFA [Concomitant]
     Active Substance: FLUTICASONE PROPIONATE\SALMETEROL XINAFOATE
  3. CLARITIN [Concomitant]
     Active Substance: LORATADINE
  4. ONFI [Concomitant]
     Active Substance: CLOBAZAM
  5. NEXIUM [Concomitant]
     Active Substance: ESOMEPRAZOLE MAGNESIUM
  6. NURTEC ODT [Concomitant]
     Active Substance: RIMEGEPANT SULFATE
  7. ALBUTEROL [Concomitant]
     Active Substance: ALBUTEROL
  8. FLONASE [Concomitant]
     Active Substance: FLUTICASONE PROPIONATE
  9. Azelystine [Concomitant]

REACTIONS (6)
  - Anaphylactic reaction [None]
  - Diplopia [None]
  - Speech disorder [None]
  - Oral discomfort [None]
  - Aphonia [None]
  - Oxygen saturation decreased [None]

NARRATIVE: CASE EVENT DATE: 20251013
